FAERS Safety Report 6215615-8 (Version None)
Quarter: 2009Q2

REPORT INFORMATION
  Report Type: 
  Country: None (occurrence: None)
  Receive Date: 20090603
  Receipt Date: 20090603
  Transmission Date: 20091009
  Serious: Yes (Hospitalization)
  Sender: FDA-Public Use
  Company Number: None

PATIENT
  Sex: Female
  Weight: 68.9 kg

DRUGS (1)
  1. PRIALT [Suspect]
     Indication: PAIN
     Dosage: PUMP

REACTIONS (5)
  - DELIRIUM [None]
  - DIZZINESS [None]
  - HALLUCINATIONS, MIXED [None]
  - INFECTION [None]
  - PYREXIA [None]
